FAERS Safety Report 24777779 (Version 1)
Quarter: 2024Q4

REPORT INFORMATION
  Report Type: Report from Study
  Country: JP (occurrence: JP)
  Receive Date: 20241226
  Receipt Date: 20241226
  Transmission Date: 20250115
  Serious: Yes (Other)
  Sender: EISAI
  Company Number: JP-Eisai-202411156_LEQ_P_1

PATIENT
  Age: 79 Year
  Sex: Male

DRUGS (2)
  1. LEQEMBI [Suspect]
     Active Substance: LECANEMAB-IRMB
     Indication: Dementia Alzheimer^s type
     Route: 042
     Dates: start: 2024, end: 2024
  2. LEQEMBI [Suspect]
     Active Substance: LECANEMAB-IRMB
     Route: 042
     Dates: start: 202412

REACTIONS (1)
  - Cerebral infarction [Recovered/Resolved]

NARRATIVE: CASE EVENT DATE: 20241121
